FAERS Safety Report 20451315 (Version 2)
Quarter: 2022Q4

REPORT INFORMATION
  Report Type: Spontaneous
  Country: US (occurrence: US)
  Receive Date: 20220209
  Receipt Date: 20221130
  Transmission Date: 20230112
  Serious: Yes (Other)
  Sender: FDA-Public Use
  Company Number: US-GILEAD-2022-0569203

PATIENT
  Sex: Male
  Weight: 87.075 kg

DRUGS (9)
  1. TRUVADA [Suspect]
     Active Substance: EMTRICITABINE\TENOFOVIR DISOPROXIL FUMARATE
     Indication: HIV infection
     Dosage: UNK
     Route: 048
     Dates: start: 2004, end: 201708
  2. BIKTARVY [Concomitant]
     Active Substance: BICTEGRAVIR SODIUM\EMTRICITABINE\TENOFOVIR ALAFENAMIDE FUMARATE
  3. DESCOVY [Concomitant]
     Active Substance: EMTRICITABINE\TENOFOVIR ALAFENAMIDE FUMARATE
  4. EMTRIVA [Concomitant]
     Active Substance: EMTRICITABINE
  5. DELSTRIGO [Concomitant]
     Active Substance: DORAVIRINE\LAMIVUDINE\TENOFOVIR DISOPROXIL FUMARATE
  6. NORVIR [Concomitant]
     Active Substance: RITONAVIR
  7. REYATAZ [Concomitant]
     Active Substance: ATAZANAVIR SULFATE
  8. ABACAVIR [Concomitant]
     Active Substance: ABACAVIR
  9. EVOTAZ [Concomitant]
     Active Substance: ATAZANAVIR SULFATE\COBICISTAT

REACTIONS (7)
  - Chronic kidney disease [Not Recovered/Not Resolved]
  - Renal impairment [Not Recovered/Not Resolved]
  - Pain [Not Recovered/Not Resolved]
  - Emotional distress [Not Recovered/Not Resolved]
  - Anxiety [Not Recovered/Not Resolved]
  - Anhedonia [Not Recovered/Not Resolved]
  - Blood creatinine increased [Unknown]

NARRATIVE: CASE EVENT DATE: 20160101
